FAERS Safety Report 18800467 (Version 2)
Quarter: 2021Q3

REPORT INFORMATION
  Report Type: Report from Study
  Country: CA (occurrence: CA)
  Receive Date: 20210128
  Receipt Date: 20210929
  Transmission Date: 20211014
  Serious: Yes (Other)
  Sender: FDA-Public Use
  Company Number: CA-PFIZER INC-2021079746

PATIENT
  Age: 50 Year
  Sex: Male

DRUGS (14)
  1. COSENTYX [Suspect]
     Active Substance: SECUKINUMAB
     Indication: PSORIASIS
     Dosage: 300 MG, MONTHLY
     Route: 058
  2. COSENTYX [Suspect]
     Active Substance: SECUKINUMAB
     Dosage: 300 MG, MONTHLY
     Route: 058
  3. COSENTYX [Suspect]
     Active Substance: SECUKINUMAB
     Dosage: 300 MG
     Route: 058
  4. HUMIRA [Concomitant]
     Active Substance: ADALIMUMAB
     Dosage: UNK
     Route: 065
  5. STELARA [Concomitant]
     Active Substance: USTEKINUMAB
     Route: 065
  6. ACITRETIN. [Concomitant]
     Active Substance: ACITRETIN
     Dosage: UNK, 1X/DAY
     Route: 065
  7. SORIATANE [Concomitant]
     Active Substance: ACITRETIN
     Route: 065
  8. METHOTREXATE SODIUM. [Suspect]
     Active Substance: METHOTREXATE SODIUM
     Route: 065
  9. SORIATANE [Concomitant]
     Active Substance: ACITRETIN
     Route: 065
  10. COSENTYX [Suspect]
     Active Substance: SECUKINUMAB
     Indication: PSORIASIS
     Dosage: 300 MG, WEEKLY
     Route: 058
  11. COSENTYX [Suspect]
     Active Substance: SECUKINUMAB
     Dosage: UNK
     Route: 058
  12. BETADERM [Concomitant]
     Active Substance: BETAMETHASONE VALERATE
     Route: 065
  13. MOMETASONE FUROATE. [Concomitant]
     Active Substance: MOMETASONE FUROATE
     Route: 065
  14. COSENTYX [Suspect]
     Active Substance: SECUKINUMAB
     Dosage: UNK
     Route: 065

REACTIONS (13)
  - Emotional distress [Unknown]
  - Back disorder [Unknown]
  - Injection site haemorrhage [Unknown]
  - Pruritus [Unknown]
  - Psoriasis [Unknown]
  - Weight decreased [Unknown]
  - Skin plaque [Unknown]
  - Sleep apnoea syndrome [Unknown]
  - Exercise lack of [Unknown]
  - Pain [Unknown]
  - Weight increased [Unknown]
  - Pain of skin [Unknown]
  - Pericarditis [Unknown]
